FAERS Safety Report 21179011 (Version 1)
Quarter: 2022Q3

REPORT INFORMATION
  Report Type: Spontaneous
  Country: JP (occurrence: JP)
  Receive Date: 20220805
  Receipt Date: 20220805
  Transmission Date: 20221027
  Serious: Yes (Hospitalization, Other)
  Sender: FDA-Public Use
  Company Number: JP-INSUD PHARMA-2207JP03054

PATIENT

DRUGS (4)
  1. LANSOPRAZOLE [Suspect]
     Active Substance: LANSOPRAZOLE
     Indication: Prophylaxis against gastrointestinal ulcer
     Dosage: UNK
     Route: 065
     Dates: start: 2019
  2. LEVOTHYROXINE [Concomitant]
     Active Substance: LEVOTHYROXINE
  3. ANGIOTENSIN II RECEPTOR BLOCKERS (ARBS) [Concomitant]
  4. WARFARIN [Concomitant]
     Active Substance: WARFARIN

REACTIONS (8)
  - Rhabdomyolysis [Recovering/Resolving]
  - Hypocalcaemia [Recovered/Resolved]
  - Hypokalaemia [Recovered/Resolved]
  - Hypomagnesaemia [Recovered/Resolved]
  - Muscular weakness [Unknown]
  - Disturbance in attention [Unknown]
  - Fatigue [Unknown]
  - Dysphagia [Unknown]

NARRATIVE: CASE EVENT DATE: 20200601
